FAERS Safety Report 23217614 (Version 2)
Quarter: 2023Q4

REPORT INFORMATION
  Report Type: Spontaneous
  Country: US (occurrence: US)
  Receive Date: 20231122
  Receipt Date: 20231130
  Transmission Date: 20240109
  Serious: Yes (Other)
  Sender: FDA-Public Use
  Company Number: US-PFIZER INC-202300377235

PATIENT
  Age: 74 Year
  Sex: Male

DRUGS (7)
  1. METHOTREXATE SODIUM [Suspect]
     Active Substance: METHOTREXATE SODIUM
     Indication: Central nervous system lymphoma
     Dosage: 3500 MG/M2, 6 CYCLES
  2. RITUXIMAB [Concomitant]
     Active Substance: RITUXIMAB
     Indication: Central nervous system lymphoma
     Dosage: UNK, 6 CYCLES
  3. VINCRISTINE [Concomitant]
     Active Substance: VINCRISTINE
     Indication: Central nervous system lymphoma
     Dosage: UNK, 6 CYCLES
  4. PROCARBAZINE [Concomitant]
     Active Substance: PROCARBAZINE
     Indication: Central nervous system lymphoma
     Dosage: UNK, 6 CYCLES
  5. PROCARBAZINE [Concomitant]
     Active Substance: PROCARBAZINE
     Dosage: UNK (DOSE DECREASED BY 25 %)
  6. LEUCOVORIN [Concomitant]
     Active Substance: LEUCOVORIN\LEUCOVORIN CALCIUM
     Dosage: 100 MG, 4X/DAY, EVERY 6 H
  7. SODIUM BICARBONATE [Concomitant]
     Active Substance: SODIUM BICARBONATE
     Dosage: 150 MEQ/L, AT 150 ML/H

REACTIONS (3)
  - Acute kidney injury [Unknown]
  - Toxicity to various agents [Unknown]
  - Drug clearance decreased [Unknown]
